FAERS Safety Report 8963884 (Version 1)
Quarter: 2012Q4

REPORT INFORMATION
  Report Type: 
  Country: US (occurrence: US)
  Receive Date: 20121213
  Receipt Date: 20121213
  Transmission Date: 20130627
  Serious: Yes (Other)
  Sender: FDA-Public Use
  Company Number: US-BAXTER-2012BAX027104

PATIENT

DRUGS (2)
  1. CYCLOPHOSPHAMIDE INJECTION 1G [Suspect]
     Indication: LUPUS NEPHRITIS
     Dosage: 0.5-1.0 G/M^2
  2. PREDNISONE [Suspect]
     Indication: LUPUS NEPHRITIS

REACTIONS (1)
  - Respiratory tract infection [Unknown]
